FAERS Safety Report 9704986 (Version 1)
Quarter: 2013Q4

REPORT INFORMATION
  Report Type: Report from Study
  Country: US (occurrence: US)
  Receive Date: 20131122
  Receipt Date: 20131122
  Transmission Date: 20140711
  Serious: No
  Sender: FDA-Public Use
  Company Number: US-ABBVIE-13P-163-1137228-00

PATIENT
  Age: 45 Year
  Sex: Male
  Weight: 93.07 kg

DRUGS (5)
  1. ANDROGEL [Suspect]
     Indication: BLOOD TESTOSTERONE DECREASED
     Route: 061
     Dates: start: 2012, end: 20130809
  2. ANDROGEL [Suspect]
     Indication: BLOOD CHOLESTEROL
     Route: 061
     Dates: end: 2012
  3. NAPROXEN [Suspect]
     Indication: ARTHRALGIA
     Dates: start: 2012, end: 2013
  4. ATORVASTATIN [Concomitant]
     Indication: BLOOD CHOLESTEROL
     Dates: end: 2013
  5. PRAVASTATIN [Concomitant]
     Indication: BLOOD CHOLESTEROL

REACTIONS (4)
  - Arthralgia [Not Recovered/Not Resolved]
  - Arthralgia [Not Recovered/Not Resolved]
  - Dyspepsia [Recovered/Resolved]
  - Inappropriate schedule of drug administration [Not Recovered/Not Resolved]
